FAERS Safety Report 6537134-1 (Version None)
Quarter: 2010Q1

REPORT INFORMATION
  Report Type: 
  Country: None (occurrence: None)
  Receive Date: 20100114
  Receipt Date: 20100113
  Transmission Date: 20100710
  Serious: Yes (Life-Threatening)
  Sender: FDA-Public Use
  Company Number: DK-BAYER-201010626GPV

PATIENT
  Age: 63 Year
  Sex: Female
  Weight: 55 kg

DRUGS (4)
  1. NEXAVAR [Suspect]
     Indication: RENAL CANCER METASTATIC
     Dosage: TOTAL DAILY DOSE: 800 MG  UNIT DOSE: 200 MG
     Route: 048
     Dates: start: 20090826, end: 20091214
  2. HJERDYL [Concomitant]
     Indication: CARDIAC DISORDER
     Dosage: TOTAL DAILY DOSE: 75 MG
     Route: 048
     Dates: start: 20090105
  3. SELO-ZOK [Concomitant]
     Indication: HYPERTENSION
     Dosage: TOTAL DAILY DOSE: 50 MG
     Route: 048
     Dates: start: 20090105
  4. ODRIK [Concomitant]
     Dosage: TOTAL DAILY DOSE: 4 MBQ  UNIT DOSE: 2 MG
     Route: 048

REACTIONS (2)
  - ACUTE ABDOMEN [None]
  - INTESTINAL PERFORATION [None]
